FAERS Safety Report 7723253-0 (Version None)
Quarter: 2011Q3

REPORT INFORMATION
  Report Type: 
  Country: None (occurrence: None)
  Receive Date: 20110826
  Receipt Date: 20110816
  Transmission Date: 20111222
  Serious: Yes (Other)
  Sender: FDA-Public Use
  Company Number: DE-GDP-11411582

PATIENT
  Sex: Female

DRUGS (1)
  1. ORAYCEA (DOXYCYCLINE) [Suspect]
     Indication: ROSACEA
     Dosage: (ORAL)
     Route: 048

REACTIONS (2)
  - DEPRESSION [None]
  - DISEASE RECURRENCE [None]
